FAERS Safety Report 20532655 (Version 2)
Quarter: 2022Q1

REPORT INFORMATION
  Report Type: Spontaneous
  Country: IN (occurrence: IN)
  Receive Date: 20220301
  Receipt Date: 20220303
  Transmission Date: 20220423
  Serious: Yes (Other)
  Sender: FDA-Public Use
  Company Number: IN-NOVARTISPH-NVSC2022IN044398

PATIENT
  Age: 57 Year
  Sex: Female
  Weight: 82.3 kg

DRUGS (1)
  1. LETROZOLE [Suspect]
     Active Substance: LETROZOLE
     Indication: Product used for unknown indication
     Dosage: 2.5 MG, QD
     Route: 065
     Dates: start: 20211120

REACTIONS (7)
  - Metabolic disorder [Unknown]
  - Metastasis [Unknown]
  - Lymphadenopathy [Unknown]
  - Asthenia [Unknown]
  - COVID-19 [Recovered/Resolved]
  - Cough [Unknown]
  - Constipation [Unknown]

NARRATIVE: CASE EVENT DATE: 20220103
